FAERS Safety Report 8970582 (Version 1)
Quarter: 2012Q4

REPORT INFORMATION
  Report Type: 
  Country: US (occurrence: US)
  Receive Date: 20121218
  Receipt Date: 20121218
  Transmission Date: 20130627
  Serious: Yes (Hospitalization)
  Sender: FDA-Public Use
  Company Number: US-BRISTOL-MYERS SQUIBB COMPANY-17058454

PATIENT
  Age: 27 Year
  Sex: Male
  Weight: 136.05 kg

DRUGS (1)
  1. ABILIFY TABS [Suspect]
     Indication: BIPOLAR DISORDER
     Dosage: restarted: 10Oct2012, 5mg Abilify tablets

REACTIONS (1)
  - Aggression [Recovering/Resolving]
